FAERS Safety Report 6256594-7 (Version None)
Quarter: 2009Q3

REPORT INFORMATION
  Report Type: 
  Country: None (occurrence: None)
  Receive Date: 20090706
  Receipt Date: 20090626
  Transmission Date: 20100115
  Serious: Yes (Hospitalization)
  Sender: FDA-Public Use
  Company Number: US-JNJFOC-20090700086

PATIENT
  Sex: Male

DRUGS (9)
  1. MOTRIN [Suspect]
     Indication: DRUG USE FOR UNKNOWN INDICATION
  2. XANAX [Suspect]
     Indication: DRUG USE FOR UNKNOWN INDICATION
  3. ALCOHOL [Suspect]
     Indication: DRUG USE FOR UNKNOWN INDICATION
  4. REMERON [Concomitant]
     Indication: DEPRESSION
  5. CELEXA [Concomitant]
     Indication: DEPRESSION
  6. SEROQUEL [Concomitant]
     Indication: DEPRESSION
  7. KLONOPIN [Concomitant]
     Indication: DEPRESSION
  8. REBIF [Concomitant]
     Indication: OFF LABEL USE
     Route: 058
  9. ZOLOFT [Concomitant]
     Indication: DEPRESSION

REACTIONS (3)
  - INTENTIONAL SELF-INJURY [None]
  - MULTIPLE DRUG OVERDOSE INTENTIONAL [None]
  - SUICIDE ATTEMPT [None]
